FAERS Safety Report 5284702-3 (Version None)
Quarter: 2007Q1

REPORT INFORMATION
  Report Type: 
  Country: None (occurrence: None)
  Receive Date: 20061222
  Receipt Date: 20060313
  Transmission Date: 20070707
  Serious: Yes (Other)
  Sender: FDA-Public Use
  Company Number: PHEH2006US03325

PATIENT
  Age: 62 Year
  Sex: Female

DRUGS (4)
  1. VIVELLE [Suspect]
     Indication: MENOPAUSAL SYMPTOMS
     Dosage: TRANSDERMAL
     Route: 062
     Dates: start: 19930101
  2. PREMARIN [Suspect]
  3. PROVERA [Suspect]
  4. MEDROXYPROGESTERONE [Suspect]

REACTIONS (2)
  - BREAST CANCER IN SITU [None]
  - MASTECTOMY [None]
